FAERS Safety Report 20782101 (Version 2)
Quarter: 2022Q2

REPORT INFORMATION
  Report Type: Spontaneous
  Country: US (occurrence: US)
  Receive Date: 20220504
  Receipt Date: 20220506
  Transmission Date: 20220721
  Serious: No
  Sender: FDA-Public Use
  Company Number: US-PINNACLE BIOLOGICS INC-2022-CLI-000006

PATIENT
  Sex: Male

DRUGS (1)
  1. PHOTOFRIN [Suspect]
     Active Substance: PORFIMER SODIUM
     Indication: Carcinoid tumour pulmonary
     Dosage: UNK
     Route: 065
     Dates: start: 20220421

REACTIONS (2)
  - Photosensitivity reaction [Unknown]
  - Treatment noncompliance [Unknown]
